FAERS Safety Report 9926610 (Version 1)
Quarter: 2014Q1

REPORT INFORMATION
  Report Type: Spontaneous
  Country: US (occurrence: US)
  Receive Date: 20140226
  Receipt Date: 20140226
  Transmission Date: 20141002
  Serious: No
  Sender: FDA-Public Use
  Company Number: US-AMGEN-USASP2013074944

PATIENT
  Age: 42 Year
  Sex: Male
  Weight: 93.88 kg

DRUGS (1)
  1. ENBREL [Suspect]
     Indication: RHEUMATOID ARTHRITIS
     Dosage: 50 MG, QWK
     Route: 058
     Dates: start: 20131008

REACTIONS (2)
  - Injection site rash [Recovered/Resolved]
  - Injection site reaction [Recovered/Resolved]
